FAERS Safety Report 8128479-2 (Version None)
Quarter: 2012Q1

REPORT INFORMATION
  Report Type: 
  Country: None (occurrence: None)
  Receive Date: 20120103
  Receipt Date: 20111117
  Transmission Date: 20120608
  Serious: No
  Sender: FDA-Public Use
  Company Number: AE-2011-001259

PATIENT
  Age: 61 Year
  Sex: Male

DRUGS (17)
  1. RIBAVIRIN [Concomitant]
  2. NEXIUM [Concomitant]
  3. INCIVEK [Suspect]
  4. PEGINTERFERON (PEGINTERFERON ALFA-2A) [Concomitant]
  5. TRAZODONE HYDROCHLORIDE [Concomitant]
  6. LITHIUM CARBONATE [Concomitant]
  7. ALLEGRA [Concomitant]
  8. LISINOPRIL [Concomitant]
  9. NOVOLOG [Concomitant]
  10. DOXAZOSIN [Concomitant]
  11. ADVAIR HFA [Concomitant]
  12. NIACIN [Concomitant]
  13. IBUPROFEN [Concomitant]
  14. ALBUTEROL [Concomitant]
  15. ATROVENT [Concomitant]
  16. GABAPENTIN [Concomitant]
  17. LANTUS [Concomitant]

REACTIONS (2)
  - HYPONATRAEMIA [None]
  - HYPOCALCAEMIA [None]
